FAERS Safety Report 15824444 (Version 2)
Quarter: 2019Q1

REPORT INFORMATION
  Report Type: Report from Study
  Country: None (occurrence: BE)
  Receive Date: 20190115
  Receipt Date: 20190123
  Transmission Date: 20190417
  Serious: Yes (Death, Hospitalization)
  Sender: FDA-Public Use
  Company Number: BE-ABBVIE-19S-013-2623680-00

PATIENT
  Sex: Male

DRUGS (9)
  1. LIPITOR [Concomitant]
     Active Substance: ATORVASTATIN CALCIUM
     Indication: PRODUCT USED FOR UNKNOWN INDICATION
  2. PROLOPA 250 [Concomitant]
     Dosage: STRENGTH: 200MG/50MG; : 0.75 TABLET 5 TIMES A DAY, 0.5  2 TIMES A DAY; RESCUE MEDICATION
  3. DUODOPA [Suspect]
     Active Substance: CARBIDOPA\LEVODOPA
     Dosage: MD=8ML,CD=5.1ML/HR DURING 16HRS ,ED=2.5ML
     Route: 050
     Dates: start: 20180607
  4. PLAVIX [Concomitant]
     Active Substance: CLOPIDOGREL BISULFATE
     Indication: PRODUCT USED FOR UNKNOWN INDICATION
  5. PROLOPA 250 [Concomitant]
     Indication: PARKINSON^S DISEASE
     Dosage: 200MG/50MG; UNIT DOSE: 0.75 TABLET 5 TIMES A DAY, 0.5 TABLET 2 TIMES A DAY
     Route: 048
  6. ASAFLOW [Concomitant]
     Active Substance: ASPIRIN
     Indication: PRODUCT USED FOR UNKNOWN INDICATION
  7. DUODOPA [Suspect]
     Active Substance: CARBIDOPA\LEVODOPA
     Indication: PARKINSON^S DISEASE
     Dosage: MD=8ML,CD=4.7ML/HR DURING 16HRS,ED=2ML
     Route: 050
     Dates: start: 20160606, end: 20160623
  8. DUODOPA [Suspect]
     Active Substance: CARBIDOPA\LEVODOPA
     Dosage: DOSES CONTINUOUSLY MONITORED AND ADAPTED
     Route: 050
     Dates: start: 20160623, end: 20180607
  9. COVERSYL [Concomitant]
     Active Substance: PERINDOPRIL
     Indication: PRODUCT USED FOR UNKNOWN INDICATION

REACTIONS (3)
  - General physical health deterioration [Unknown]
  - Pneumonia aspiration [Fatal]
  - Stoma site infection [Unknown]
